FAERS Safety Report 7782545-X (Version None)
Quarter: 2011Q3

REPORT INFORMATION
  Report Type: 
  Country: None (occurrence: None)
  Receive Date: 20110923
  Receipt Date: 20110909
  Transmission Date: 20111222
  Serious: Yes (Other)
  Sender: FDA-Public Use
  Company Number: 2011VX002749

PATIENT
  Age: 50 Year
  Sex: Male

DRUGS (3)
  1. LEUCOVORIN SODIUM [Suspect]
     Indication: COLORECTAL CANCER METASTATIC
  2. FLUOROURACIL [Suspect]
     Indication: COLORECTAL CANCER METASTATIC
  3. ELOXATIN [Suspect]
     Indication: COLORECTAL CANCER METASTATIC

REACTIONS (5)
  - COGNITIVE DISORDER [None]
  - HYPERAMMONAEMIC ENCEPHALOPATHY [None]
  - VOMITING [None]
  - CONFUSIONAL STATE [None]
  - NAUSEA [None]
